FAERS Safety Report 15030267 (Version 1)
Quarter: 2018Q2

REPORT INFORMATION
  Report Type: Spontaneous
  Country: US (occurrence: US)
  Receive Date: 20180619
  Receipt Date: 20180619
  Transmission Date: 20180711
  Serious: Yes (Disabling)
  Sender: FDA-Public Use
  Company Number: US-PFIZER INC-2018243436

PATIENT
  Age: 59 Year
  Sex: Male

DRUGS (2)
  1. VIAGRA [Suspect]
     Active Substance: SILDENAFIL CITRATE
     Dosage: ONCE A DAY AND SOMETIMES TOOK IT TWICE A DAY IN THE MORNING AND MAYBE AT NIGHT
     Route: 048
  2. VIAGRA [Suspect]
     Active Substance: SILDENAFIL CITRATE
     Dosage: HAVE TAKEN 10 MG BEFORE AND HAVE TAKEN 20 MG BEFORE

REACTIONS (4)
  - Concussion [Recovered/Resolved]
  - Road traffic accident [Unknown]
  - Mental disability [Unknown]
  - Intentional product misuse [Unknown]

NARRATIVE: CASE EVENT DATE: 20170613
